FAERS Safety Report 8460040-2 (Version None)
Quarter: 2012Q2

REPORT INFORMATION
  Report Type: 
  Country: None (occurrence: None)
  Receive Date: 20120622
  Receipt Date: 20120621
  Transmission Date: 20120825
  Serious: Yes (Life-Threatening)
  Sender: FDA-Public Use
  Company Number: PHHO2011GB019661

PATIENT
  Sex: Female

DRUGS (7)
  1. BLINDED NO TREATMENT RECEIVED [Suspect]
     Indication: HEPATITIS C
     Dosage: DOUBLE BLINDED
     Dates: start: 20111031
  2. PLACEBO [Suspect]
     Indication: HEPATITIS C
     Dosage: DOUBLE BLINDED
     Dates: start: 20111031
  3. PEGASYS [Suspect]
     Indication: HEPATITIS C
     Dosage: 180 UG, QW
     Dates: start: 20111031
  4. OMEPRAZOLE [Suspect]
     Indication: GASTROOESOPHAGEAL REFLUX DISEASE
     Route: 048
  5. BLINDED DEB025 [Suspect]
     Indication: HEPATITIS C
     Dosage: DOUBLE BLINDED
     Dates: start: 20111031
  6. RIBAVIRIN [Suspect]
     Indication: HEPATITIS C
     Dosage: 600 MG, BID
     Dates: start: 20111031
  7. LANSOPRAZOLE [Suspect]
     Indication: GASTROOESOPHAGEAL REFLUX DISEASE
     Dosage: 30 MG, QD
     Dates: start: 20011020

REACTIONS (2)
  - HYPERTENSION [None]
  - HEADACHE [None]
